FAERS Safety Report 7524530-9 (Version None)
Quarter: 2011Q2

REPORT INFORMATION
  Report Type: 
  Country: None (occurrence: None)
  Receive Date: 20110606
  Receipt Date: 20110516
  Transmission Date: 20111010
  Serious: Yes (Hospitalization, Other)
  Sender: FDA-Public Use
  Company Number: US-BAYER-2011-016002

PATIENT
  Age: 46 Year
  Sex: Female
  Weight: 74 kg

DRUGS (17)
  1. PAXIL CR [Concomitant]
     Dosage: 12.5 MG, UNK
  2. ZOFRAN [Concomitant]
  3. PHENERGAN HCL [Concomitant]
  4. PAXIL [Concomitant]
     Route: 048
  5. BUPROPION HCL [Concomitant]
     Dosage: 100 MG, BID
  6. YASMIN [Suspect]
     Indication: ORAL CONTRACEPTION
  7. FLEXERIL [Concomitant]
     Dosage: 10 MG, UNK
     Route: 048
  8. DARVOCET [Concomitant]
     Dosage: UNK UNK, PRN
  9. ZOFRAN [Concomitant]
  10. PHENERGAN HCL [Concomitant]
  11. FENTANYL [Concomitant]
     Dosage: 25 ?G, Q72HR
  12. DURAGESIC-100 [Concomitant]
     Route: 048
  13. LOMOTIL [DIPHENOXYLATE HYDROCHLORIDE] [Concomitant]
     Indication: DIARRHOEA
     Dosage: 2.5 MG, UNK
     Route: 048
  14. YASMIN [Suspect]
     Indication: ACNE
     Dosage: UNK
     Dates: start: 20030101, end: 20080101
  15. DILAUDID [Concomitant]
     Indication: PAIN
  16. DILAUDID [Concomitant]
  17. WELLBUTRIN [Concomitant]
     Route: 048

REACTIONS (5)
  - THROMBOSIS [None]
  - PANCREATITIS [None]
  - GALLBLADDER OPERATION [None]
  - DYSPEPSIA [None]
  - HEADACHE [None]
